FAERS Safety Report 9400424 (Version 2)
Quarter: 2013Q3

REPORT INFORMATION
  Report Type: Spontaneous
  Country: US (occurrence: US)
  Receive Date: 20130715
  Receipt Date: 20130722
  Transmission Date: 20140515
  Serious: Yes (Other)
  Sender: FDA-Public Use
  Company Number: US-TEVA-417986USA

PATIENT
  Sex: Female

DRUGS (1)
  1. CLONIDINE [Suspect]
     Dosage: 0.2 MG/25 HR PATCH
     Route: 062
     Dates: start: 20130626, end: 20130626

REACTIONS (11)
  - Coma [Recovering/Resolving]
  - Loss of consciousness [Recovering/Resolving]
  - Depressed level of consciousness [Recovering/Resolving]
  - Haemorrhage [Unknown]
  - Dry throat [Unknown]
  - Dry mouth [Unknown]
  - Paraesthesia [Unknown]
  - Sedation [Unknown]
  - Somnolence [Unknown]
  - Lethargy [Unknown]
  - Disorientation [Unknown]
